FAERS Safety Report 7157878-0 (Version None)
Quarter: 2010Q4

REPORT INFORMATION
  Report Type: 
  Country: None (occurrence: None)
  Receive Date: 20101214
  Receipt Date: 20101207
  Transmission Date: 20110411
  Serious: Yes (Other)
  Sender: FDA-Public Use
  Company Number: CA-PFIZER INC-2010126820

PATIENT
  Age: 52 Year
  Sex: Female

DRUGS (17)
  1. LYRICA [Suspect]
     Indication: PAIN
     Dosage: 150 MG, 3X/DAY
     Route: 048
     Dates: start: 20070709, end: 20101013
  2. OXYCONTIN [Suspect]
     Indication: PAIN
     Dosage: 20MG TWICE DAILY AND 10MG AT NOON, UNK
     Route: 048
     Dates: start: 20090409
  3. CLONAZEPAM [Concomitant]
     Indication: ANXIETY
     Dosage: 0.5 MG, 2X/DAY
     Route: 048
  4. TIAZAC [Concomitant]
     Indication: BLOOD PRESSURE
     Dosage: 180MG AT BEDTIME
     Route: 048
  5. TIAZAC [Concomitant]
     Indication: CARDIAC DISORDER
  6. CESAMET [Concomitant]
     Dosage: 0.5 MG, 1X/DAY AT BEDTIME
     Route: 048
  7. CYMBALTA [Concomitant]
     Indication: PAIN
     Dosage: 30 MG, 1X/DAY
     Route: 048
     Dates: end: 20101013
  8. CYMBALTA [Concomitant]
     Indication: FIBROMYALGIA
  9. FUROSEMIDE [Concomitant]
     Indication: BLOOD PRESSURE
     Dosage: 20 MG, 2X/DAY
  10. FUROSEMIDE [Concomitant]
     Indication: FLUID RETENTION
  11. SPIRONOLACTONE [Concomitant]
     Indication: BLOOD PRESSURE
     Dosage: 25 MG, 1X/DAY
  12. SPIRONOLACTONE [Concomitant]
     Indication: FLUID RETENTION
  13. SALBUTAMOL [Concomitant]
     Indication: ASTHMA
     Route: 055
  14. ADVAIR DISKUS 100/50 [Concomitant]
     Indication: ASTHMA
     Dosage: 500 UG, UNK
  15. ADVAIR DISKUS 100/50 [Concomitant]
     Indication: CHRONIC OBSTRUCTIVE PULMONARY DISEASE
  16. SPIRIVA [Concomitant]
     Indication: ASTHMA
     Dosage: UNK
  17. SPIRIVA [Concomitant]
     Indication: CHRONIC OBSTRUCTIVE PULMONARY DISEASE

REACTIONS (2)
  - AMNESIA [None]
  - DRUG DEPENDENCE [None]
